FAERS Safety Report 11129476 (Version 4)
Quarter: 2015Q3

REPORT INFORMATION
  Report Type: Spontaneous
  Country: CH (occurrence: ES)
  Receive Date: 20150521
  Receipt Date: 20150730
  Transmission Date: 20151125
  Serious: Yes (Other)
  Sender: FDA-Public Use
  Company Number: CH-LPDUSPRD-20150355

PATIENT
  Age: 26 Year
  Sex: Female

DRUGS (4)
  1. PENTASA [Concomitant]
     Active Substance: MESALAMINE
     Dosage: 500MG, 2 IN 1 D
     Route: 048
  2. LORMETAZEPAM [Concomitant]
     Active Substance: LORMETAZEPAM
     Dosage: DOSE NOT PROVIDED
     Route: 065
     Dates: start: 201410
  3. OPTOVITE B12 [Concomitant]
     Dosage: 1000 MCG, 1 IN 15 D
     Route: 030
     Dates: start: 20150413
  4. FERINJECT [Suspect]
     Active Substance: FERRIC CARBOXYMALTOSE
     Dosage: 1000MG/250ML NS
     Route: 041
     Dates: start: 20150420, end: 20150420

REACTIONS (2)
  - Product quality issue [Unknown]
  - Influenza like illness [Unknown]

NARRATIVE: CASE EVENT DATE: 20150420
